FAERS Safety Report 9100446 (Version 2)
Quarter: 2013Q1

REPORT INFORMATION
  Report Type: Spontaneous
  Country: JP (occurrence: JP)
  Receive Date: 20130214
  Receipt Date: 20130219
  Transmission Date: 20140127
  Serious: No
  Sender: FDA-Public Use
  Company Number: JP-009507513-1302JPN004172

PATIENT
  Age: 61 Year
  Sex: Female

DRUGS (2)
  1. EMEND [Suspect]
     Indication: PROPHYLAXIS OF NAUSEA AND VOMITING
     Dosage: UNK
     Route: 048
  2. BENIDIPINE HYDROCHLORIDE [Interacting]
     Route: 048

REACTIONS (2)
  - Drug interaction [Unknown]
  - Blood pressure decreased [Recovered/Resolved]
